FAERS Safety Report 17457762 (Version 1)
Quarter: 2020Q1

REPORT INFORMATION
  Report Type: Spontaneous
  Country: US (occurrence: US)
  Receive Date: 20200225
  Receipt Date: 20200225
  Transmission Date: 20200409
  Serious: No
  Sender: FDA-Public Use
  Company Number: US-JNJFOC-20200207260

PATIENT
  Sex: Female
  Weight: 57.66 kg

DRUGS (1)
  1. WOMENS ROGAINE [Suspect]
     Active Substance: MINOXIDIL
     Indication: ALOPECIA
     Dosage: 1 ML TWICE A DAY
     Route: 061

REACTIONS (2)
  - Product residue present [Not Recovered/Not Resolved]
  - Hair texture abnormal [Not Recovered/Not Resolved]
